FAERS Safety Report 20610557 (Version 1)
Quarter: 2022Q1

REPORT INFORMATION
  Report Type: Spontaneous
  Country: US (occurrence: US)
  Receive Date: 20220318
  Receipt Date: 20220318
  Transmission Date: 20220423
  Serious: Yes (Death, Hospitalization, Other)
  Sender: FDA-Public Use
  Company Number: US-AMGEN-USASP2022044282

PATIENT
  Age: 42 Year
  Sex: Female

DRUGS (4)
  1. TRASTUZUMAB [Suspect]
     Active Substance: TRASTUZUMAB
     Indication: Breast cancer metastatic
     Route: 065
  2. DOCETAXEL [Concomitant]
     Active Substance: DOCETAXEL
  3. CARBOPLATIN [Concomitant]
     Active Substance: CARBOPLATIN
  4. NERATINIB [Concomitant]
     Active Substance: NERATINIB

REACTIONS (9)
  - Death [Fatal]
  - Metastases to lymph nodes [Unknown]
  - Metastases to liver [Unknown]
  - Metastases to bone [Unknown]
  - Right ventricular enlargement [Unknown]
  - Right ventricular dysfunction [Unknown]
  - Cardiac septal defect [Unknown]
  - Pulmonary tumour thrombotic microangiopathy [Unknown]
  - General physical health deterioration [Unknown]
